FAERS Safety Report 9262472 (Version 1)
Quarter: 2013Q2

REPORT INFORMATION
  Report Type: Spontaneous
  Country: US (occurrence: None)
  Receive Date: 20130426
  Receipt Date: 20130426
  Transmission Date: 20140414
  Serious: Yes (Life-Threatening)
  Sender: FDA-Public Use
  Company Number: None

PATIENT
  Sex: Female

DRUGS (3)
  1. LANSOPRAZOLE [Suspect]
     Indication: GASTROOESOPHAGEAL REFLUX DISEASE
     Route: 048
     Dates: start: 20130114, end: 20130318
  2. OMEPRAZOLE [Suspect]
     Route: 048
     Dates: start: 20130318, end: 20130401
  3. PANTOPRAZOLE [Suspect]
     Route: 048
     Dates: start: 20130401

REACTIONS (3)
  - No therapeutic response [None]
  - Product substitution issue [None]
  - Adverse reaction [None]
